FAERS Safety Report 21568642 (Version 2)
Quarter: 2022Q4

REPORT INFORMATION
  Report Type: Spontaneous
  Country: JP (occurrence: JP)
  Receive Date: 20221108
  Receipt Date: 20221124
  Transmission Date: 20230113
  Serious: Yes (Hospitalization)
  Sender: FDA-Public Use
  Company Number: JP-002147023-NVSJ2022JP100473

PATIENT
  Age: 64 Year
  Sex: Female
  Weight: 62.3 kg

DRUGS (11)
  1. VILDAGLIPTIN [Suspect]
     Active Substance: VILDAGLIPTIN
     Indication: Type 2 diabetes mellitus
     Dosage: 50 MG, BID
     Route: 048
  2. ATORVASTATIN [Suspect]
     Active Substance: ATORVASTATIN
     Indication: Type 2 diabetes mellitus
     Dosage: 20 MG, QD
     Route: 048
  3. GLICLAZIDE [Suspect]
     Active Substance: GLICLAZIDE
     Indication: Type 2 diabetes mellitus
     Dosage: 20 MG, QD
     Route: 065
  4. METFORMIN HYDROCHLORIDE [Suspect]
     Active Substance: METFORMIN HYDROCHLORIDE
     Indication: Type 2 diabetes mellitus
     Dosage: 250 MG, BID
     Route: 065
  5. CANAGLIFLOZIN [Suspect]
     Active Substance: CANAGLIFLOZIN
     Indication: Type 2 diabetes mellitus
     Dosage: 100 MG, QD
     Route: 065
  6. AZELNIDIPINE [Suspect]
     Active Substance: AZELNIDIPINE
     Indication: Hypertension
     Dosage: 1 DOSAGE FORM, QD
     Route: 048
  7. NIFEDIPINE [Suspect]
     Active Substance: NIFEDIPINE
     Indication: Hypertension
     Dosage: 20 MG, QD
     Route: 065
  8. CILNIDIPINE [Suspect]
     Active Substance: CILNIDIPINE
     Indication: Hypertension
     Dosage: 20 MG, QD
     Route: 065
  9. CARVEDILOL [Suspect]
     Active Substance: CARVEDILOL
     Indication: Hypertension
     Dosage: 10 MG, QD
     Route: 065
  10. ICOSAPENT ETHYL [Suspect]
     Active Substance: ICOSAPENT ETHYL
     Indication: Dyslipidaemia
     Dosage: 900 MG, BID
     Route: 065
  11. LANSOPRAZOLE [Suspect]
     Active Substance: LANSOPRAZOLE
     Indication: Hypertension
     Dosage: 15 MG, QD
     Route: 065

REACTIONS (7)
  - Hyperglycaemic hyperosmolar nonketotic syndrome [Recovered/Resolved]
  - Fall [Unknown]
  - Depressed level of consciousness [Unknown]
  - Ocular dysmetria [Unknown]
  - Facial spasm [Unknown]
  - Aphasia [Unknown]
  - Encephalopathy [Unknown]
